FAERS Safety Report 6356890-9 (Version None)
Quarter: 2009Q3

REPORT INFORMATION
  Report Type: 
  Country: None (occurrence: None)
  Receive Date: 20090915
  Receipt Date: 20090907
  Transmission Date: 20100115
  Serious: Yes (Hospitalization)
  Sender: FDA-Public Use
  Company Number: SE-ASTRAZENECA-2009SE11796

PATIENT
  Age: 72 Year
  Sex: Female

DRUGS (12)
  1. SELOKEN ZOC [Suspect]
     Route: 048
     Dates: start: 20090501, end: 20090501
  2. EMCONCOR CHF [Suspect]
     Route: 048
     Dates: start: 20080501, end: 20090201
  3. SPIRIVA [Concomitant]
  4. SERETIDE DISKUS [Concomitant]
     Dosage: 50 MIKROGRAM/250 MIK
     Route: 055
  5. CYMBALTA [Concomitant]
  6. COZAAR COMP FORTE [Concomitant]
     Dosage: 100 MG/25 MG
  7. NORFLOXACIN [Concomitant]
  8. THERALEN [Concomitant]
     Dosage: 40 MG/ML
     Route: 048
  9. SOBRIL [Concomitant]
     Route: 048
  10. MADOPARK [Concomitant]
     Dosage: 100MG / 25MG
     Route: 048
  11. TROMBYL [Concomitant]
     Route: 048
  12. SIFROL [Concomitant]
     Route: 048

REACTIONS (5)
  - ASTHMA [None]
  - COUGH [None]
  - CYANOSIS [None]
  - DYSPNOEA [None]
  - EOSINOPHILIC PNEUMONIA [None]
